FAERS Safety Report 19189498 (Version 1)
Quarter: 2021Q2

REPORT INFORMATION
  Report Type: Spontaneous
  Country: US (occurrence: US)
  Receive Date: 20210428
  Receipt Date: 20210428
  Transmission Date: 20210717
  Serious: Yes (Hospitalization)
  Sender: FDA-Public Use
  Company Number: None

PATIENT
  Age: 76 Year
  Sex: Male
  Weight: 92.53 kg

DRUGS (1)
  1. AMOXICILLIN/CLAVULANATE (AMOXICILLIN 1000MG/CLAVULANATE K 62.5MG TAB, SA) [Suspect]
     Active Substance: AMOXICILLIN\CLAVULANATE POTASSIUM
     Indication: BACTERAEMIA
     Route: 048
     Dates: start: 20201227, end: 20201231

REACTIONS (2)
  - Skin exfoliation [None]
  - Rash macular [None]

NARRATIVE: CASE EVENT DATE: 20210121
